FAERS Safety Report 21487144 (Version 1)
Quarter: 2022Q4

REPORT INFORMATION
  Report Type: Spontaneous
  Country: KR (occurrence: KR)
  Receive Date: 20221020
  Receipt Date: 20221020
  Transmission Date: 20230112
  Serious: Yes (Hospitalization)
  Sender: FDA-Public Use
  Company Number: KR-FreseniusKabi-FK202213946

PATIENT
  Age: 93 Year
  Sex: Female

DRUGS (12)
  1. REMIFENTANIL [Suspect]
     Active Substance: REMIFENTANIL
     Indication: General anaesthesia
     Dosage: REMIFENTANIL WAS ADJUSTED TO EFFECT SITE TARGET CONCENTRATION OF 2?10 NG/ML DURING THE OPERATION.
     Route: 042
  2. REMIMAZOLAM [Suspect]
     Active Substance: REMIMAZOLAM
     Indication: General anaesthesia
     Dosage: 6 MG/KG/H UNTIL LOSS OF CONSCIOUSNESS AND THEREAFTER WAS MAINTAINED AT A RATE OF 1 ML/KG/H
  3. REMIMAZOLAM [Suspect]
     Active Substance: REMIMAZOLAM
     Dosage: THEREAFTER  WAS MAINTAINED AT A RATE OF 1 ML/KG/H.
  4. FENTANYL [Concomitant]
     Active Substance: FENTANYL
     Indication: Pain management
     Route: 042
  5. FENTANYL [Concomitant]
     Active Substance: FENTANYL
     Route: 042
  6. SUGAMMADEX [Concomitant]
     Active Substance: SUGAMMADEX
     Indication: Product used for unknown indication
     Dosage: 200 MG
  7. LEVOTHYROXINE [Concomitant]
     Active Substance: LEVOTHYROXINE
     Indication: Product used for unknown indication
     Dosage: 200 MGS
  8. antihypertensive agent [Concomitant]
     Indication: Product used for unknown indication
  9. UNSPECIFIED INGREDIENT [Concomitant]
     Active Substance: UNSPECIFIED INGREDIENT
     Indication: Product used for unknown indication
  10. BENZODIAZEPINE [Concomitant]
     Active Substance: BENZODIAZEPINE
     Indication: Product used for unknown indication
  11. ZOLPIDEM [Concomitant]
     Active Substance: ZOLPIDEM TARTRATE
     Indication: Product used for unknown indication
  12. PREGABALIN [Concomitant]
     Active Substance: PREGABALIN
     Indication: Product used for unknown indication

REACTIONS (1)
  - Dissociative disorder [Recovered/Resolved]
